FAERS Safety Report 22593474 (Version 1)
Quarter: 2023Q2

REPORT INFORMATION
  Report Type: Spontaneous
  Country: CH (occurrence: CH)
  Receive Date: 20230613
  Receipt Date: 20230613
  Transmission Date: 20230722
  Serious: Yes (Life-Threatening, Hospitalization, Other)
  Sender: FDA-Public Use
  Company Number: CH-Orion Corporation ORION PHARMA-TREX2023-0141

PATIENT
  Age: 14 Year
  Sex: Female

DRUGS (3)
  1. METHOTREXATE [Suspect]
     Active Substance: METHOTREXATE
     Indication: Osteosarcoma
     Dosage: DOSE: 12 G/M2 TOTAL
  2. SODIUM BICARBONATE [Concomitant]
     Active Substance: SODIUM BICARBONATE
     Indication: Hypervolaemia
     Dosage: 200 ML/M2/H WITH 40 MEQ/L SODIUM BICARBONATE FOR 6 H PRIOR TO HDMTX?STRENGTH: 40 MEQ/L
  3. SODIUM BICARBONATE [Concomitant]
     Active Substance: SODIUM BICARBONATE
     Dosage: CONTINUED (125 ML/M2/H) DURING THE METHOTREXATE ADMINISTRATION

REACTIONS (9)
  - Cholestasis [Recovering/Resolving]
  - Acute kidney injury [Recovering/Resolving]
  - Haemodynamic instability [Unknown]
  - Acute hepatic failure [Recovering/Resolving]
  - Drug clearance decreased [Recovering/Resolving]
  - Metabolic acidosis [Unknown]
  - Altered state of consciousness [Unknown]
  - Toxicity to various agents [Unknown]
  - Product use in unapproved indication [Unknown]
